FAERS Safety Report 5949411-3 (Version None)
Quarter: 2008Q4

REPORT INFORMATION
  Report Type: 
  Country: None (occurrence: None)
  Receive Date: 20081112
  Receipt Date: 20081031
  Transmission Date: 20090506
  Serious: Yes (Other)
  Sender: FDA-Public Use
  Company Number: PHHY2008DE22311

PATIENT
  Sex: Female

DRUGS (2)
  1. DIOVAN [Suspect]
     Indication: HYPERTENSION
     Dosage: 80 MG, UNK
  2. DIOVAN HCT [Suspect]
     Indication: HYPERTENSION
     Dosage: 160/25 MG
     Dates: end: 20080801

REACTIONS (4)
  - ARTHROPATHY [None]
  - BLOOD PRESSURE INADEQUATELY CONTROLLED [None]
  - FREQUENT BOWEL MOVEMENTS [None]
  - MUSCLE ATROPHY [None]
